FAERS Safety Report 13544833 (Version 1)
Quarter: 2017Q2

REPORT INFORMATION
  Report Type: Spontaneous
  Country: ES (occurrence: ES)
  Receive Date: 20170515
  Receipt Date: 20170515
  Transmission Date: 20170830
  Serious: Yes (Hospitalization, Other)
  Sender: FDA-Public Use
  Company Number: PHHY2017ES067657

PATIENT

DRUGS (1)
  1. IMATINIB [Suspect]
     Active Substance: IMATINIB
     Indication: CHRONIC MYELOID LEUKAEMIA
     Dosage: UNK
     Route: 065

REACTIONS (11)
  - Face oedema [Unknown]
  - Vomiting [Unknown]
  - Melaena [Unknown]
  - Hepatic encephalopathy [Unknown]
  - Decreased appetite [Unknown]
  - Hepatic failure [Unknown]
  - Pulmonary hypertension [Unknown]
  - Hypertension [Unknown]
  - Oedema peripheral [Unknown]
  - Ascites [Unknown]
  - Nausea [Unknown]
